FAERS Safety Report 12739034 (Version 1)
Quarter: 2016Q3

REPORT INFORMATION
  Report Type: Spontaneous
  Country: FR (occurrence: FR)
  Receive Date: 20160913
  Receipt Date: 20160913
  Transmission Date: 20161109
  Serious: Yes (Hospitalization)
  Sender: FDA-Public Use
  Company Number: FR-PFIZER INC-2016421720

PATIENT
  Age: 30 Year
  Sex: Male

DRUGS (8)
  1. ARIMIDEX [Suspect]
     Active Substance: ANASTROZOLE
     Route: 048
  2. ALDACTONE [Suspect]
     Active Substance: SPIRONOLACTONE
     Route: 048
  3. WINSTROL [Concomitant]
     Active Substance: STANOZOLOL
     Dosage: 50 MG, DAILY
     Route: 048
  4. VENTOLINE /00139501/ [Concomitant]
     Active Substance: ALBUTEROL
     Indication: ASTHMA
     Dosage: UNK, AS NEEDED
  5. TESTOSTERONE PROPIONATE. [Suspect]
     Active Substance: TESTOSTERONE PROPIONATE
     Dosage: 1 MG, DAILY
     Route: 030
  6. CLENBUTEROL [Suspect]
     Active Substance: CLENBUTEROL
  7. SERETIDE [Concomitant]
     Active Substance: FLUTICASONE PROPIONATE\SALMETEROL XINAFOATE
     Indication: ASTHMA
     Dosage: 500 UG, DAILY
  8. SOMATOTROPIN (HUMAN) [Concomitant]
     Dosage: 6.5 MG, DAILY
     Route: 058

REACTIONS (2)
  - Pancreatitis acute [Recovered/Resolved]
  - Product use issue [Unknown]

NARRATIVE: CASE EVENT DATE: 201608
